FAERS Safety Report 7523834-3 (Version None)
Quarter: 2011Q2

REPORT INFORMATION
  Report Type: 
  Country: None (occurrence: None)
  Receive Date: 20110603
  Receipt Date: 20110524
  Transmission Date: 20111010
  Serious: Yes (Hospitalization)
  Sender: FDA-Public Use
  Company Number: JP-ELI_LILLY_AND_COMPANY-JP201104006372

PATIENT
  Sex: Female
  Weight: 58.2 kg

DRUGS (5)
  1. CARBOPLATIN [Concomitant]
     Indication: LUNG ADENOCARCINOMA
     Dosage: 6 DF, OTHER
     Route: 042
     Dates: start: 20101126, end: 20110311
  2. PANVITAN [Concomitant]
  3. ALIMTA [Suspect]
     Indication: LUNG ADENOCARCINOMA
     Dosage: 500 MG/M2, OTHER
     Route: 042
     Dates: start: 20101126
  4. AVASTIN [Concomitant]
     Indication: LUNG ADENOCARCINOMA
     Dosage: 15 MG/KG, OTHER
     Route: 042
     Dates: start: 20101126, end: 20110404
  5. METHYCOBAL [Concomitant]

REACTIONS (1)
  - APPENDICITIS PERFORATED [None]
